FAERS Safety Report 6601549-3 (Version None)
Quarter: 2010Q1

REPORT INFORMATION
  Report Type: 
  Country: None (occurrence: None)
  Receive Date: 20100225
  Receipt Date: 20091203
  Transmission Date: 20100710
  Serious: No
  Sender: FDA-Public Use
  Company Number: US-KINGPHARMUSA00001-K200901511

PATIENT
  Sex: Female

DRUGS (1)
  1. FLECTOR [Suspect]
     Indication: MUSCULOSKELETAL PAIN
     Dosage: 1 PATCH, SINGLE
     Route: 061
     Dates: start: 20091202, end: 20091203

REACTIONS (7)
  - EAR PAIN [None]
  - HEADACHE [None]
  - HYPERSENSITIVITY [None]
  - NASAL CONGESTION [None]
  - PERFUME SENSITIVITY [None]
  - SNEEZING [None]
  - VERTIGO [None]
